FAERS Safety Report 9395408 (Version 1)
Quarter: 2013Q3

REPORT INFORMATION
  Report Type: Spontaneous
  Country: US (occurrence: US)
  Receive Date: 20130711
  Receipt Date: 20130711
  Transmission Date: 20140515
  Serious: No
  Sender: FDA-Public Use
  Company Number: US-ASTELLAS-2013US004180

PATIENT
  Age: 76 Year
  Sex: Female

DRUGS (1)
  1. MYRBETRIQ [Suspect]
     Indication: CYSTITIS
     Dosage: 25 MG, UID/QD
     Route: 048
     Dates: start: 201304

REACTIONS (3)
  - Off label use [Unknown]
  - Viral infection [Recovered/Resolved]
  - Diarrhoea [Recovered/Resolved]
